FAERS Safety Report 14218148 (Version 10)
Quarter: 2019Q1

REPORT INFORMATION
  Report Type: Spontaneous
  Country: JP (occurrence: JP)
  Receive Date: 20171123
  Receipt Date: 20190301
  Transmission Date: 20190417
  Serious: Yes (Hospitalization, Other)
  Sender: FDA-Public Use
  Company Number: JP-009507513-1708JPN002872J

PATIENT
  Age: 62 Year
  Sex: Male
  Weight: 70 kg

DRUGS (11)
  1. KEYTRUDA [Suspect]
     Active Substance: PEMBROLIZUMAB
     Dosage: 200 MG, Q3W
     Route: 041
     Dates: start: 20170809, end: 20170830
  2. BENZBROMARONE [Concomitant]
     Active Substance: BENZBROMARONE
     Dosage: 25 MG, UNK
     Route: 048
  3. KEYTRUDA [Suspect]
     Active Substance: PEMBROLIZUMAB
     Dosage: 200 MG, Q3W
     Route: 041
     Dates: start: 20171101, end: 20180328
  4. LANSOPRAZOLE OD [Concomitant]
     Active Substance: LANSOPRAZOLE
     Dosage: 15 MG, UNK
     Route: 048
  5. PITAVASTATIN CALCIUM [Concomitant]
     Active Substance: PITAVASTATIN CALCIUM
     Dosage: 2 MG, UNK
     Route: 048
  6. KEYTRUDA [Suspect]
     Active Substance: PEMBROLIZUMAB
     Indication: LUNG SQUAMOUS CELL CARCINOMA STAGE III
     Dosage: 200 MG, Q3W
     Route: 041
     Dates: start: 20170315, end: 20170628
  7. CALONAL [Concomitant]
     Active Substance: ACETAMINOPHEN
     Dosage: 1500 MG, UNK
     Route: 048
  8. CODEINE PHOSPHATE HYDRATE [Concomitant]
     Active Substance: CODEINE PHOSPHATE
     Dosage: 2 G, BID
     Route: 048
     Dates: start: 20170405
  9. OLMETEC [Concomitant]
     Active Substance: OLMESARTAN MEDOXOMIL
     Dosage: 20 MG, QD
     Route: 048
  10. SHAKUYAKUKANZOTO [Concomitant]
     Active Substance: HERBALS
     Dosage: 7.5 G, UNK
     Route: 048
  11. CODEINE PHOSPHATE HYDRATE [Concomitant]
     Active Substance: CODEINE PHOSPHATE
     Dosage: 2 G, PRN
     Route: 048
     Dates: start: 20170318, end: 20170404

REACTIONS (6)
  - Blood creatine phosphokinase increased [Recovered/Resolved]
  - Hypothyroidism [Recovering/Resolving]
  - Therapy partial responder [Unknown]
  - Hyperthyroidism [Recovering/Resolving]
  - Leukoderma [Recovered/Resolved]
  - Therapeutic response unexpected [Unknown]

NARRATIVE: CASE EVENT DATE: 20170628
